FAERS Safety Report 4923379-0 (Version None)
Quarter: 2006Q1

REPORT INFORMATION
  Report Type: 
  Country: None (occurrence: None)
  Receive Date: 20060227
  Receipt Date: 20060217
  Transmission Date: 20060701
  Serious: Yes (Other)
  Sender: FDA-Public Use
  Company Number: US-JNJFOC-20060204988

PATIENT
  Sex: Male
  Weight: 117.94 kg

DRUGS (5)
  1. DURAGESIC-100 [Suspect]
     Route: 062
  2. DURAGESIC-100 [Suspect]
     Route: 062
  3. DURAGESIC-100 [Suspect]
     Route: 062
  4. DURAGESIC-100 [Suspect]
     Route: 062
  5. OXYCODONE [Concomitant]
     Indication: PAIN
     Dosage: 5 MG, AS NECESSARY, ORAL
     Route: 048

REACTIONS (8)
  - CATARACT [None]
  - CERVICAL VERTEBRAL FRACTURE [None]
  - GLAUCOMA [None]
  - INTERVERTEBRAL DISC COMPRESSION [None]
  - LUMBAR VERTEBRAL FRACTURE [None]
  - ROAD TRAFFIC ACCIDENT [None]
  - SPONDYLITIS [None]
  - WEIGHT DECREASED [None]
